FAERS Safety Report 7984903-7 (Version None)
Quarter: 2011Q4

REPORT INFORMATION
  Report Type: 
  Country: None (occurrence: None)
  Receive Date: 20111216
  Receipt Date: 20111018
  Transmission Date: 20120403
  Serious: No
  Sender: FDA-Public Use
  Company Number: US-ALLERGAN-1113514US

PATIENT
  Age: 39 Year
  Sex: Female

DRUGS (4)
  1. LATISSE [Suspect]
  2. VITAMINS UNSPECIFIED [Concomitant]
  3. LATISSE [Suspect]
     Indication: GROWTH OF EYELASHES
     Dosage: 1 GTT, UNK
     Route: 061
     Dates: start: 20110401
  4. BIRTH CONTROL PILLS [Concomitant]
     Dosage: UNK

REACTIONS (3)
  - INAPPROPRIATE SCHEDULE OF DRUG ADMINISTRATION [None]
  - TRICHORRHEXIS [None]
  - MADAROSIS [None]
